FAERS Safety Report 16922045 (Version 3)
Quarter: 2019Q4

REPORT INFORMATION
  Report Type: Spontaneous
  Country: JP (occurrence: JP)
  Receive Date: 20191015
  Receipt Date: 20191226
  Transmission Date: 20200122
  Serious: Yes (Life-Threatening, Hospitalization, Disabling, Other)
  Sender: FDA-Public Use
  Company Number: JP-009507513-1908JPN002553J

PATIENT
  Age: 72 Year
  Sex: Male
  Weight: 79 kg

DRUGS (7)
  1. KEYTRUDA [Suspect]
     Active Substance: PEMBROLIZUMAB
     Dosage: 200 MILLIGRAM, Q3W
     Route: 041
     Dates: start: 20191217
  2. BIOTIN [Concomitant]
     Active Substance: BIOTIN
     Dosage: 1 GRAM, BID
     Route: 048
     Dates: start: 20180205
  3. HIRUDOID [Concomitant]
     Active Substance: GLYCOSAMINOGLYCANS
     Dosage: UNK UNK, QD
     Route: 051
     Dates: start: 20190416, end: 20190611
  4. EPINASTINE. [Concomitant]
     Active Substance: EPINASTINE HYDROCHLORIDE
     Dosage: 1 DOSAGE FORM, QD
     Route: 048
     Dates: start: 20190122, end: 20190625
  5. KEYTRUDA [Suspect]
     Active Substance: PEMBROLIZUMAB
     Indication: TRANSITIONAL CELL CARCINOMA
     Dosage: 200 MILLIGRAM, Q3W
     Route: 041
     Dates: start: 20190124, end: 20190530
  6. BILASTINE [Concomitant]
     Active Substance: BILASTINE
     Dosage: 1 DOSAGE FORM, QD
     Route: 048
     Dates: start: 20170919, end: 20190625
  7. LIDOMEX [Concomitant]
     Active Substance: PREDNISOLONE VALERATE ACETATE
     Dosage: UNK UNK, QD
     Route: 051
     Dates: start: 20190416, end: 20190611

REACTIONS (3)
  - Thyroiditis chronic [Recovering/Resolving]
  - Adrenal insufficiency [Recovering/Resolving]
  - Depression [Unknown]

NARRATIVE: CASE EVENT DATE: 20190620
